FAERS Safety Report 26037465 (Version 1)
Quarter: 2025Q4

REPORT INFORMATION
  Report Type: Report from Study
  Country: CO (occurrence: CO)
  Receive Date: 20251112
  Receipt Date: 20251112
  Transmission Date: 20260118
  Serious: Yes (Life-Threatening, Hospitalization, Other)
  Sender: NOVARTIS
  Company Number: CO-002147023-NVSC2019CO122977

PATIENT
  Sex: Female
  Weight: 87.7 kg

DRUGS (10)
  1. ELTROMBOPAG OLAMINE [Suspect]
     Active Substance: ELTROMBOPAG OLAMINE
     Indication: Aplastic anaemia
     Dosage: 50 MG, QD
     Route: 048
     Dates: start: 20181130, end: 20190409
  2. ELTROMBOPAG OLAMINE [Suspect]
     Active Substance: ELTROMBOPAG OLAMINE
     Dosage: UNK
     Route: 048
  3. ELTROMBOPAG OLAMINE [Suspect]
     Active Substance: ELTROMBOPAG OLAMINE
     Dosage: UNK, QD
     Route: 048
  4. ELTROMBOPAG OLAMINE [Suspect]
     Active Substance: ELTROMBOPAG OLAMINE
     Dosage: 50 MG, QD
     Route: 048
  5. CYCLOSPORINE [Suspect]
     Active Substance: CYCLOSPORINE
     Indication: Aplastic anaemia
     Dosage: UNK, Q8H
     Route: 048
  6. CYCLOSPORINE [Suspect]
     Active Substance: CYCLOSPORINE
     Indication: Eye disorder
  7. LOSARTAN [Suspect]
     Active Substance: LOSARTAN
     Indication: Hypertension
     Dosage: 100 MG, QD, (50 MG, Q12H)
     Route: 048
  8. FOLIC ACID [Concomitant]
     Active Substance: FOLIC ACID
     Indication: Product used for unknown indication
     Dosage: 5 MG, QD
     Route: 048
  9. DANAZOL [Concomitant]
     Active Substance: DANAZOL
     Indication: Aplastic anaemia
     Dosage: UNK
     Route: 048
  10. IRON [Concomitant]
     Active Substance: IRON
     Dosage: UNK, QD
     Route: 048

REACTIONS (59)
  - Platelet count decreased [Unknown]
  - Bone marrow failure [Unknown]
  - Vision blurred [Unknown]
  - General physical health deterioration [Unknown]
  - Fall [Unknown]
  - Cholelithiasis [Unknown]
  - Crying [Unknown]
  - Mass [Unknown]
  - Coagulopathy [Unknown]
  - Gingival bleeding [Unknown]
  - Back pain [Unknown]
  - Pain [Unknown]
  - Pain in extremity [Unknown]
  - Arthralgia [Unknown]
  - Headache [Unknown]
  - Haematochezia [Unknown]
  - Haemorrhage [Unknown]
  - Hypoacusis [Unknown]
  - Alcohol poisoning [Unknown]
  - Syncope [Unknown]
  - Bone pain [Unknown]
  - Influenza [Unknown]
  - Biliary colic [Unknown]
  - Vitreous floaters [Unknown]
  - Dysgeusia [Unknown]
  - Fear [Unknown]
  - Nervousness [Unknown]
  - Pallor [Unknown]
  - Mobility decreased [Unknown]
  - Gait disturbance [Unknown]
  - Illness [Unknown]
  - Ear discomfort [Unknown]
  - Malaise [Unknown]
  - Joint swelling [Recovered/Resolved]
  - Limb injury [Recovered/Resolved]
  - Abdominal injury [Recovered/Resolved]
  - Joint injury [Recovered/Resolved]
  - Peripheral swelling [Recovered/Resolved]
  - Contusion [Recovered/Resolved]
  - Boredom [Unknown]
  - Stress [Unknown]
  - Depressed mood [Unknown]
  - Stress urinary incontinence [Unknown]
  - Asthenia [Unknown]
  - Discouragement [Unknown]
  - Hand fracture [Unknown]
  - Joint injury [Unknown]
  - Contusion [Unknown]
  - Injury [Unknown]
  - Abdominal pain upper [Unknown]
  - Vomiting [Unknown]
  - Constipation [Unknown]
  - Cough [Unknown]
  - Fatigue [Unknown]
  - Dry mouth [Not Recovered/Not Resolved]
  - Pyrexia [Unknown]
  - Dizziness [Unknown]
  - Product use issue [Unknown]
  - Product use in unapproved indication [Unknown]
